FAERS Safety Report 24425618 (Version 2)
Quarter: 2024Q4

REPORT INFORMATION
  Report Type: Spontaneous
  Country: DE (occurrence: DE)
  Receive Date: 20241011
  Receipt Date: 20241211
  Transmission Date: 20250114
  Serious: Yes (Hospitalization, Other)
  Sender: ALEXION PHARMACEUTICALS
  Company Number: DE-AstraZeneca-CH-00721708AM

PATIENT
  Age: 72 Year
  Weight: 90 kg

DRUGS (20)
  1. FASLODEX [Suspect]
     Active Substance: FULVESTRANT
     Dosage: UNK
     Route: 065
  2. FASLODEX [Suspect]
     Active Substance: FULVESTRANT
     Dosage: UNK
     Route: 065
  3. FASLODEX [Suspect]
     Active Substance: FULVESTRANT
     Dosage: UNK
     Route: 065
  4. FASLODEX [Suspect]
     Active Substance: FULVESTRANT
     Dosage: UNK
     Route: 065
  5. FASLODEX [Suspect]
     Active Substance: FULVESTRANT
     Dosage: UNK, IN COMBINATION
     Route: 065
  6. FASLODEX [Suspect]
     Active Substance: FULVESTRANT
     Dosage: UNK, IN COMBINATION
     Route: 065
  7. FASLODEX [Suspect]
     Active Substance: FULVESTRANT
     Dosage: UNK, IN COMBINATION
     Route: 065
  8. FASLODEX [Suspect]
     Active Substance: FULVESTRANT
     Dosage: UNK, IN COMBINATION
     Route: 065
  9. FASLODEX [Suspect]
     Active Substance: FULVESTRANT
     Dosage: 250 MILLIGRAM, QMONTH
     Route: 030
  10. FASLODEX [Suspect]
     Active Substance: FULVESTRANT
     Dosage: 250 MILLIGRAM, QMONTH
  11. FASLODEX [Suspect]
     Active Substance: FULVESTRANT
     Dosage: 250 MILLIGRAM, QMONTH
     Route: 030
  12. FASLODEX [Suspect]
     Active Substance: FULVESTRANT
     Dosage: 250 MILLIGRAM, QMONTH
  13. PALBOCICLIB [Suspect]
     Active Substance: PALBOCICLIB
     Dosage: 75 MILLIGRAM, QD
  14. PALBOCICLIB [Suspect]
     Active Substance: PALBOCICLIB
     Dosage: 75 MILLIGRAM, QD
     Route: 048
  15. PALBOCICLIB [Suspect]
     Active Substance: PALBOCICLIB
     Dosage: 75 MILLIGRAM, QD
  16. PALBOCICLIB [Suspect]
     Active Substance: PALBOCICLIB
     Dosage: 75 MILLIGRAM, QD
     Route: 048
  17. RAMIPRIL [Suspect]
     Active Substance: RAMIPRIL
     Dosage: 5 MILLIGRAM, QD
     Route: 065
  18. RAMIPRIL [Suspect]
     Active Substance: RAMIPRIL
     Dosage: 5 MILLIGRAM, QD
     Route: 065
  19. RAMIPRIL [Suspect]
     Active Substance: RAMIPRIL
     Dosage: 5 MILLIGRAM, QD
     Route: 065
  20. RAMIPRIL [Suspect]
     Active Substance: RAMIPRIL
     Dosage: 5 MILLIGRAM, QD
     Route: 065

REACTIONS (7)
  - Necrosis [Recovered/Resolved]
  - Inflammation [Recovered/Resolved]
  - Rash [Recovering/Resolving]
  - Pain [Not Recovered/Not Resolved]
  - Muscle tightness [Unknown]
  - Medication error [Unknown]
  - Off label use [Unknown]
